FAERS Safety Report 24196116 (Version 1)
Quarter: 2024Q3

REPORT INFORMATION
  Report Type: Spontaneous
  Country: EU (occurrence: ES)
  Receive Date: 20240809
  Receipt Date: 20240809
  Transmission Date: 20241017
  Serious: Yes (Other)
  Sender: RADIUS PHARM
  Company Number: EU-RADIUS HEALTH, INC.-2024ES005928

PATIENT
  Sex: Female

DRUGS (1)
  1. ABALOPARATIDE [Suspect]
     Active Substance: ABALOPARATIDE
     Indication: Product used for unknown indication
     Dosage: 80 MICROGRAM

REACTIONS (3)
  - Swollen tongue [Unknown]
  - Swelling face [Unknown]
  - Injection site erythema [Unknown]
